FAERS Safety Report 4544717-7 (Version None)
Quarter: 2005Q1

REPORT INFORMATION
  Report Type: 
  Country: None (occurrence: None)
  Receive Date: 20050103
  Receipt Date: 20050103
  Transmission Date: 20050727
  Serious: No
  Sender: FDA-Public Use
  Company Number: None

PATIENT
  Sex: Male
  Weight: 63.5036 kg

DRUGS (1)
  1. OXYCONTIN [Suspect]
     Indication: PAIN
     Dosage: 40MG   2 TIMES/DAY NASAL
     Route: 045
     Dates: start: 19991117, end: 20041230

REACTIONS (3)
  - DRUG DEPENDENCE [None]
  - FEELING ABNORMAL [None]
  - MEDICATION ERROR [None]
